FAERS Safety Report 5036764-6 (Version None)
Quarter: 2006Q2

REPORT INFORMATION
  Report Type: 
  Country: None (occurrence: None)
  Receive Date: 20060622
  Receipt Date: 20060620
  Transmission Date: 20061013
  Serious: Yes (Other)
  Sender: FDA-Public Use
  Company Number: 214149

PATIENT
  Sex: Female

DRUGS (2)
  1. RITUXAN [Suspect]
     Indication: NON-HODGKIN'S LYMPHOMA
  2. KEFLEX [Concomitant]

REACTIONS (3)
  - LOSS OF CONSCIOUSNESS [None]
  - OESOPHAGEAL INFECTION [None]
  - URINARY INCONTINENCE [None]
